FAERS Safety Report 8091902-6 (Version None)
Quarter: 2012Q1

REPORT INFORMATION
  Report Type: 
  Country: None (occurrence: None)
  Receive Date: 20120129
  Receipt Date: 20111221
  Transmission Date: 20120608
  Serious: No
  Sender: FDA-Public Use
  Company Number: US-ABBOTT-11P-163-0881252-00

PATIENT
  Age: 51 Year
  Sex: Male

DRUGS (3)
  1. TRAMADOL HCL [Concomitant]
     Indication: PRODUCT USED FOR UNKNOWN INDICATION
  2. HUMIRA [Suspect]
     Indication: CROHN'S DISEASE
     Dosage: INITIAL LOADING DOSE
     Dates: start: 20111123, end: 20111123
  3. HUMIRA [Suspect]

REACTIONS (7)
  - DRUG INEFFECTIVE [None]
  - MUSCLE STRAIN [None]
  - NAUSEA [None]
  - FREQUENT BOWEL MOVEMENTS [None]
  - EAR PAIN [None]
  - ARTHRITIS [None]
  - WEIGHT INCREASED [None]
